FAERS Safety Report 21139283 (Version 1)
Quarter: 2022Q3

REPORT INFORMATION
  Report Type: Spontaneous
  Country: US (occurrence: US)
  Receive Date: 20220727
  Receipt Date: 20220727
  Transmission Date: 20221027
  Serious: Yes (Hospitalization, Other)
  Sender: FDA-Public Use
  Company Number: US-MLMSERVICE-20220714-3674626-1

PATIENT
  Age: 44 Year
  Sex: Female

DRUGS (2)
  1. DURAGESIC [Suspect]
     Active Substance: FENTANYL
     Indication: Product used for unknown indication
     Route: 065
  2. NARCAN [Concomitant]
     Active Substance: NALOXONE HYDROCHLORIDE
     Indication: Anterograde amnesia

REACTIONS (4)
  - Leukoencephalopathy [Unknown]
  - Unresponsive to stimuli [Unknown]
  - Overdose [Unknown]
  - Amnestic disorder [Recovering/Resolving]
